FAERS Safety Report 6980756-4 (Version None)
Quarter: 2010Q3

REPORT INFORMATION
  Report Type: 
  Country: None (occurrence: None)
  Receive Date: 20100914
  Receipt Date: 20100902
  Transmission Date: 20110219
  Serious: Yes (Hospitalization)
  Sender: FDA-Public Use
  Company Number: US-WATSON-2010-12060

PATIENT
  Age: 61 Year
  Sex: Female

DRUGS (4)
  1. HYDROMORPHONE HYDROCHLORIDE (WATSON LABORATORIES) [Suspect]
     Indication: BACK PAIN
     Dosage: UNK
     Route: 037
  2. HYDROMORPHONE HYDROCHLORIDE (WATSON LABORATORIES) [Suspect]
     Indication: PAIN IN EXTREMITY
  3. MORPHINE SULFATE INJ [Suspect]
     Indication: BACK PAIN
     Dosage: 5 MG, DAILY
     Route: 037
  4. MORPHINE SULFATE INJ [Suspect]
     Indication: PAIN IN EXTREMITY

REACTIONS (1)
  - CELLULITIS [None]
